FAERS Safety Report 5726735-6 (Version None)
Quarter: 2008Q2

REPORT INFORMATION
  Report Type: 
  Country: None (occurrence: None)
  Receive Date: 20080502
  Receipt Date: 20080422
  Transmission Date: 20081010
  Serious: Yes (Hospitalization)
  Sender: FDA-Public Use
  Company Number: FR-WYE-H03883908

PATIENT
  Sex: Female

DRUGS (11)
  1. CORDARONE [Suspect]
     Indication: ARRHYTHMIA
     Route: 048
     Dates: start: 20070901
  2. FENOFIBRATE [Suspect]
     Indication: HYPERCHOLESTEROLAEMIA
     Route: 048
     Dates: start: 19990101
  3. TRAMADOL HCL [Suspect]
     Indication: PAIN
     Dosage: UNSPECIFIED
     Dates: start: 20071201, end: 20071201
  4. TRAMADOL HCL [Suspect]
     Route: 048
     Dates: start: 20080206, end: 20080207
  5. STILNOX [Concomitant]
     Route: 048
  6. RABEPRAZOLE SODIUM [Concomitant]
     Route: 048
  7. MOTILIUM [Concomitant]
     Route: 048
  8. COLTRAMYL [Concomitant]
     Dosage: 8 MG
     Route: 048
  9. DAFALGAN [Concomitant]
     Dosage: UNSPECIFIED
  10. ASPIRIN [Suspect]
     Indication: THROMBOSIS PROPHYLAXIS
     Route: 048
     Dates: start: 20071101
  11. GAVISCON [Concomitant]
     Dosage: UNSPECIFIED
     Route: 048

REACTIONS (3)
  - HALLUCINATION, VISUAL [None]
  - PANCREATITIS ACUTE [None]
  - TENSION HEADACHE [None]
